FAERS Safety Report 4891359-X (Version None)
Quarter: 2006Q1

REPORT INFORMATION
  Report Type: 
  Country: None (occurrence: None)
  Receive Date: 20060125
  Receipt Date: 20051213
  Transmission Date: 20060701
  Serious: Yes (Hospitalization)
  Sender: FDA-Public Use
  Company Number: BR-ABBOTT-05P-020-0319751-00

PATIENT
  Age: 44 Year
  Sex: Female
  Weight: 71 kg

DRUGS (4)
  1. PLENTY [Suspect]
     Indication: WEIGHT CONTROL
     Route: 048
     Dates: start: 20051001, end: 20051016
  2. PLENTY [Suspect]
     Route: 048
     Dates: start: 20051126, end: 20051206
  3. PLENTY [Suspect]
     Route: 048
     Dates: start: 20051206
  4. AMILORIDE CHLORTHALIDON [Concomitant]
     Indication: DRUG USE FOR UNKNOWN INDICATION
     Route: 048
     Dates: start: 20051101

REACTIONS (4)
  - CALCULUS BLADDER [None]
  - DRUG INEFFECTIVE [None]
  - FOOD CRAVING [None]
  - UNEVALUABLE EVENT [None]
